FAERS Safety Report 5373898-0 (Version None)
Quarter: 2007Q2

REPORT INFORMATION
  Report Type: 
  Country: None (occurrence: None)
  Receive Date: 20070615
  Receipt Date: 20060531
  Transmission Date: 20071010
  Serious: Yes (Other)
  Sender: FDA-Public Use
  Company Number: 200611869US

PATIENT
  Age: 68 Year
  Sex: Female

DRUGS (13)
  1. LANTUS [Suspect]
     Indication: DIABETES MELLITUS NON-INSULIN-DEPENDENT
     Dosage: 30 U HS SC
     Route: 058
     Dates: start: 20060201, end: 20060221
  2. LANTUS [Suspect]
     Indication: DIABETES MELLITUS NON-INSULIN-DEPENDENT
     Dosage: 24 U HS SC
     Route: 058
     Dates: start: 20060222, end: 20060223
  3. LANTUS [Suspect]
     Indication: DIABETES MELLITUS NON-INSULIN-DEPENDENT
     Dosage: 16 U HS SC
     Route: 058
     Dates: start: 20060224
  4. OPTICLIK [Suspect]
  5. NORVASC [Concomitant]
  6. LASIX [Concomitant]
  7. POTASSIUM CHLORIDE [Concomitant]
  8. AVANDIA [Concomitant]
  9. METFORMIN HCL [Concomitant]
  10. BENAZEPRIL HYDROCHLORIDE (LOTENSIN) [Concomitant]
  11. ADENOSINE (TRICOR) [Concomitant]
  12. ATORVASTATIN CALCIUM (LIPITOR) [Concomitant]
  13. RABEPRAZOLE SODIUM (ACIPHEX) [Concomitant]

REACTIONS (7)
  - ASTHENIA [None]
  - BALANCE DISORDER [None]
  - BLOOD GLUCOSE DECREASED [None]
  - BLOOD GLUCOSE INCREASED [None]
  - DYSARTHRIA [None]
  - HYPERHIDROSIS [None]
  - HYPOGLYCAEMIA [None]
